FAERS Safety Report 8611748-7 (Version None)
Quarter: 2012Q3

REPORT INFORMATION
  Report Type: 
  Country: None (occurrence: None)
  Receive Date: 20120822
  Receipt Date: 20120815
  Transmission Date: 20120928
  Serious: Yes (Life-Threatening, Hospitalization)
  Sender: FDA-Public Use
  Company Number: CH-ROCHE-1092442

PATIENT
  Sex: Female
  Weight: 62 kg

DRUGS (2)
  1. HERCEPTIN [Concomitant]
     Indication: BREAST CANCER
     Route: 042
     Dates: start: 20120101
  2. XELODA [Suspect]
     Indication: BREAST CANCER
     Route: 048
     Dates: start: 20120617, end: 20120629

REACTIONS (12)
  - ENTEROCOLITIS [None]
  - VOMITING [None]
  - INFECTION [None]
  - ABDOMINAL PAIN [None]
  - PYREXIA [None]
  - SMALL INTESTINAL PERFORATION [None]
  - HYPOALBUMINAEMIA [None]
  - NEUTROPENIA [None]
  - ANAEMIA [None]
  - SEPSIS [None]
  - LYMPHOPENIA [None]
  - DIARRHOEA [None]
